FAERS Safety Report 15903661 (Version 1)
Quarter: 2019Q1

REPORT INFORMATION
  Report Type: Spontaneous
  Country: US (occurrence: US)
  Receive Date: 20190203
  Receipt Date: 20190203
  Transmission Date: 20190417
  Serious: Yes (Death)
  Sender: FDA-Public Use
  Company Number: PHEH2019US005113

PATIENT

DRUGS (3)
  1. LETROZOLE. [Suspect]
     Active Substance: LETROZOLE
     Indication: MALIGNANT NEOPLASM OF PLEURA
     Dosage: UNK
     Route: 065
     Dates: start: 201611
  2. IBRANCE [Suspect]
     Active Substance: PALBOCICLIB
     Dosage: 100 MG, QD (FOR 21 DAYS)
     Route: 048
     Dates: start: 20170209
  3. IBRANCE [Suspect]
     Active Substance: PALBOCICLIB
     Indication: MALIGNANT NEOPLASM OF PLEURA
     Dosage: UNK
     Route: 048
     Dates: start: 201611

REACTIONS (2)
  - Product use in unapproved indication [Unknown]
  - Death [Fatal]
